FAERS Safety Report 8316877-3 (Version None)
Quarter: 2012Q2

REPORT INFORMATION
  Report Type: 
  Country: None (occurrence: None)
  Receive Date: 20120427
  Receipt Date: 20120418
  Transmission Date: 20120825
  Serious: Yes (Hospitalization, Other)
  Sender: FDA-Public Use
  Company Number: PHMT2006CA01252

PATIENT
  Sex: Male

DRUGS (13)
  1. SANDOSTATIN LAR [Suspect]
     Dosage: 50 MG EVERY 4 WEEKS
     Route: 030
  2. INDAPAMIDE [Concomitant]
  3. TIAZAC [Concomitant]
  4. SANDOSTATIN LAR [Suspect]
     Indication: CARCINOID TUMOUR
     Dosage: 50 MG, QMO
     Route: 030
     Dates: start: 20050202
  5. SANDOSTATIN LAR [Suspect]
     Dosage: 30 MG, UNK
     Route: 030
     Dates: end: 20091201
  6. FENTANYL CITRATE [Concomitant]
     Route: 062
  7. METOPROLOL TARTRATE [Concomitant]
  8. ANTIBIOTICS [Suspect]
     Route: 042
  9. SANDOSTATIN LAR [Suspect]
     Dosage: 60 MG, UNK
  10. PRILOSEC [Concomitant]
  11. CRESTOR [Concomitant]
  12. NITROGLYCERIN [Concomitant]
     Route: 062
  13. REMERON [Concomitant]

REACTIONS (62)
  - FALL [None]
  - HEART RATE IRREGULAR [None]
  - LIVER ABSCESS [None]
  - STRESS [None]
  - DIARRHOEA [None]
  - SKIN IRRITATION [None]
  - PRURITUS [None]
  - INJECTION SITE PAIN [None]
  - DYSURIA [None]
  - CHEST PAIN [None]
  - SYNCOPE [None]
  - HALLUCINATION [None]
  - HEADACHE [None]
  - ARTERIOSCLEROSIS [None]
  - OCULAR ICTERUS [None]
  - DIZZINESS [None]
  - URTICARIA [None]
  - FLUID RETENTION [None]
  - HEMIPARESIS [None]
  - DYSKINESIA [None]
  - WEIGHT DECREASED [None]
  - HEART RATE DECREASED [None]
  - INJECTION SITE HAEMATOMA [None]
  - CONTUSION [None]
  - FLANK PAIN [None]
  - MUSCULOSKELETAL PAIN [None]
  - MOUTH ULCERATION [None]
  - PALPITATIONS [None]
  - SOMNOLENCE [None]
  - GAIT DISTURBANCE [None]
  - YELLOW SKIN [None]
  - CEREBROVASCULAR ACCIDENT [None]
  - ELECTROCARDIOGRAM AMBULATORY [None]
  - CHOLECYSTITIS [None]
  - PAIN [None]
  - BRADYCARDIA [None]
  - ANXIETY [None]
  - RASH PRURITIC [None]
  - PENIS DISORDER [None]
  - CIRCULATORY COLLAPSE [None]
  - LOSS OF CONSCIOUSNESS [None]
  - GASTROOESOPHAGEAL REFLUX DISEASE [None]
  - HIATUS HERNIA [None]
  - ARTHRALGIA [None]
  - GENITAL SWELLING [None]
  - TERMINAL DRIBBLING [None]
  - BALANCE DISORDER [None]
  - FATIGUE [None]
  - NEOPLASM PROGRESSION [None]
  - HYPOTENSION [None]
  - FLUSHING [None]
  - PAIN IN EXTREMITY [None]
  - VOMITING [None]
  - NAUSEA [None]
  - ABDOMINAL PAIN UPPER [None]
  - ABDOMINAL PAIN [None]
  - DYSPNOEA [None]
  - RENAL IMPAIRMENT [None]
  - WHEEZING [None]
  - INJECTION SITE REACTION [None]
  - INJECTION SITE MASS [None]
  - OEDEMA PERIPHERAL [None]
